FAERS Safety Report 5374762-3 (Version None)
Quarter: 2007Q2

REPORT INFORMATION
  Report Type: 
  Country: None (occurrence: None)
  Receive Date: 20070629
  Receipt Date: 20070622
  Transmission Date: 20071010
  Serious: Yes (Other)
  Sender: FDA-Public Use
  Company Number: FR-ABBOTT-07P-056-0369192-00

PATIENT
  Sex: Male
  Weight: 85 kg

DRUGS (4)
  1. SIBUTRAL [Suspect]
     Indication: OBESITY
     Route: 048
     Dates: start: 20060217, end: 20070417
  2. ORLISTAT [Concomitant]
     Indication: OBESITY
     Route: 048
     Dates: start: 20060217
  3. METFORMIN HCL [Concomitant]
     Indication: OBESITY
     Route: 048
     Dates: start: 20060217
  4. METFORMIN HCL [Concomitant]
     Indication: FAMILIAL RISK FACTOR

REACTIONS (2)
  - ERECTILE DYSFUNCTION [None]
  - WEIGHT INCREASED [None]
